FAERS Safety Report 8456907-1 (Version None)
Quarter: 2012Q2

REPORT INFORMATION
  Report Type: 
  Country: None (occurrence: None)
  Receive Date: 20120621
  Receipt Date: 20120611
  Transmission Date: 20120825
  Serious: Yes (Hospitalization)
  Sender: FDA-Public Use
  Company Number: NO-JNJFOC-20120314170

PATIENT
  Age: 25 Year
  Sex: Male
  Weight: 115 kg

DRUGS (5)
  1. IMURAN [Concomitant]
     Indication: COLITIS ULCERATIVE
  2. PREDNISOLONE [Concomitant]
     Indication: COLITIS ULCERATIVE
     Dosage: DOSE REPORTED AS 10-15 MG
  3. REMICADE [Suspect]
     Dosage: HAD 12 ROUNDS OF INFLIXIMAB
     Route: 042
     Dates: start: 20100601, end: 20110530
  4. REMICADE [Suspect]
     Route: 042
     Dates: start: 20100101, end: 20100101
  5. REMICADE [Suspect]
     Indication: COLITIS ULCERATIVE
     Dosage: INITIALLY GIVEN AT 0, 2 AND 6 WEEKS
     Route: 042
     Dates: start: 20100113

REACTIONS (2)
  - ILEOSTOMY [None]
  - COLECTOMY [None]
